FAERS Safety Report 24884400 (Version 1)
Quarter: 2025Q1

REPORT INFORMATION
  Report Type: Spontaneous
  Country: PR (occurrence: PR)
  Receive Date: 20250124
  Receipt Date: 20250124
  Transmission Date: 20250409
  Serious: Yes (Other)
  Sender: SANOFI AVENTIS
  Company Number: PR-SA-2025SA020412

PATIENT
  Age: 79 Year
  Sex: Female
  Weight: 45.45 kg

DRUGS (7)
  1. AUBAGIO [Suspect]
     Active Substance: TERIFLUNOMIDE
     Indication: Multiple sclerosis
     Dosage: 7 MG, QD
     Route: 048
  2. AUBAGIO [Suspect]
     Active Substance: TERIFLUNOMIDE
     Route: 048
  3. AUBAGIO [Suspect]
     Active Substance: TERIFLUNOMIDE
     Dosage: 7 MG, QD
     Route: 048
  4. COVID-19 VACCINE NOS [Suspect]
     Active Substance: COVID-19 VACCINE
  5. MEMANTINE [Concomitant]
     Active Substance: MEMANTINE
  6. QUETIAPINE [Concomitant]
     Active Substance: QUETIAPINE
  7. BUSPIRONE [Concomitant]
     Active Substance: BUSPIRONE HYDROCHLORIDE

REACTIONS (7)
  - Dementia Alzheimer^s type [Unknown]
  - General physical health deterioration [Unknown]
  - Gait disturbance [Unknown]
  - Dizziness [Unknown]
  - Fall [Unknown]
  - Musculoskeletal chest pain [Unknown]
  - Hernia [Unknown]
